FAERS Safety Report 4571642-8 (Version None)
Quarter: 2005Q1

REPORT INFORMATION
  Report Type: 
  Country: None (occurrence: None)
  Receive Date: 20050207
  Receipt Date: 20050127
  Transmission Date: 20050727
  Serious: Yes (Hospitalization)
  Sender: FDA-Public Use
  Company Number: CH-BRISTOL-MYERS SQUIBB COMPANY-12841631

PATIENT
  Age: 59 Year
  Sex: Female
  Weight: 80 kg

DRUGS (3)
  1. SELIPRAN TABS [Suspect]
     Route: 048
  2. LARIAM [Suspect]
     Indication: PROPHYLAXIS
     Route: 048
     Dates: start: 20041101
  3. ACTIVELLA [Suspect]
     Indication: MENOPAUSAL DISORDER
     Route: 048

REACTIONS (7)
  - ABDOMINAL PAIN [None]
  - CHROMATURIA [None]
  - HEPATITIS A ANTIBODY POSITIVE [None]
  - JAUNDICE CHOLESTATIC [None]
  - NAUSEA [None]
  - PROTHROMBIN TIME PROLONGED [None]
  - TRANSAMINASES INCREASED [None]
